FAERS Safety Report 8132525-X (Version None)
Quarter: 2012Q1

REPORT INFORMATION
  Report Type: 
  Country: None (occurrence: None)
  Receive Date: 20120213
  Receipt Date: 20120206
  Transmission Date: 20120608
  Serious: Yes (Other)
  Sender: FDA-Public Use
  Company Number: GB-ALEXION PHARMACEUTICALS INC.-A201200218

PATIENT
  Weight: 1.81 kg

DRUGS (1)
  1. SOLIRIS [Suspect]
     Indication: MATERNAL EXPOSURE DURING PREGNANCY
     Dosage: 900 MG, Q2W
     Dates: start: 20110401, end: 20120112

REACTIONS (3)
  - CAESAREAN SECTION [None]
  - FOETAL DISTRESS SYNDROME [None]
  - PREMATURE BABY [None]
